FAERS Safety Report 4736942-7 (Version None)
Quarter: 2005Q3

REPORT INFORMATION
  Report Type: 
  Country: None (occurrence: None)
  Receive Date: 20050808
  Receipt Date: 20050725
  Transmission Date: 20060218
  Serious: Yes (Life-Threatening, Hospitalization)
  Sender: FDA-Public Use
  Company Number: CZ-ROCHE-411791

PATIENT
  Age: 21 Year
  Sex: Female
  Weight: 30.8 kg

DRUGS (4)
  1. PEG-INTERFERON ALFA 2A (RO 25-8310) [Suspect]
     Dosage: FORMULATION: SYRINGE
     Route: 058
     Dates: start: 20040930, end: 20050602
  2. RIBAVIRIN [Suspect]
     Route: 048
     Dates: start: 20040930, end: 20050602
  3. LEVOTHYROXINE SODIUM [Concomitant]
     Dates: start: 20040527
  4. DIANE [Concomitant]
     Dates: start: 20030615

REACTIONS (3)
  - CARDIAC TAMPONADE [None]
  - CARDIOMEGALY [None]
  - PERICARDITIS [None]
